FAERS Safety Report 5032312-5 (Version None)
Quarter: 2006Q2

REPORT INFORMATION
  Report Type: 
  Country: None (occurrence: None)
  Receive Date: 20060620
  Receipt Date: 20060620
  Transmission Date: 20061013
  Serious: Yes (Other)
  Sender: FDA-Public Use
  Company Number: None

PATIENT
  Sex: Female
  Weight: 56.6996 kg

DRUGS (1)
  1. NUVARING [Suspect]
     Indication: CONTRACEPTION
     Dosage: 1 1 IN 3 WEEKS VAG
     Route: 067
     Dates: start: 20051015, end: 20051016

REACTIONS (5)
  - DIZZINESS [None]
  - HEADACHE [None]
  - SYNCOPE [None]
  - VISION BLURRED [None]
  - VOMITING [None]
